FAERS Safety Report 12059609 (Version 2)
Quarter: 2016Q1

REPORT INFORMATION
  Report Type: Spontaneous
  Country: US (occurrence: US)
  Receive Date: 20160210
  Receipt Date: 20160222
  Transmission Date: 20160526
  Serious: Yes (Hospitalization)
  Sender: FDA-Public Use
  Company Number: US-HORIZON-ACT-0026-2016

PATIENT
  Age: 11 Year
  Sex: Male
  Weight: 29.9 kg

DRUGS (1)
  1. ACTIMMUNE [Suspect]
     Active Substance: INTERFERON GAMMA-1B
     Indication: CHRONIC GRANULOMATOUS DISEASE
     Dosage: 45 ?G 3 TIMES A WEEK
     Dates: start: 20130814

REACTIONS (3)
  - Staphylococcal infection [Recovered/Resolved]
  - Infection [Unknown]
  - Liver abscess [Recovered/Resolved]
